FAERS Safety Report 13883567 (Version 1)
Quarter: 2017Q3

REPORT INFORMATION
  Report Type: Report from Study
  Country: US (occurrence: US)
  Receive Date: 20170819
  Receipt Date: 20170819
  Transmission Date: 20171127
  Serious: Yes (Other)
  Sender: FDA-Public Use
  Company Number: US-ROCHE-1980309

PATIENT
  Sex: Female

DRUGS (1)
  1. MYCOPHENOLATE MOFETIL. [Suspect]
     Active Substance: MYCOPHENOLATE MOFETIL
     Indication: SYSTEMIC LUPUS ERYTHEMATOSUS
     Route: 048

REACTIONS (7)
  - White blood cell count decreased [Unknown]
  - Vitamin D deficiency [Unknown]
  - Fatigue [Unknown]
  - Off label use [Unknown]
  - Blood potassium decreased [Unknown]
  - Platelet count decreased [Unknown]
  - Intentional product use issue [Unknown]
